FAERS Safety Report 8080036-2 (Version None)
Quarter: 2012Q1

REPORT INFORMATION
  Report Type: 
  Country: None (occurrence: None)
  Receive Date: 20120128
  Receipt Date: 20110808
  Transmission Date: 20120608
  Serious: No
  Sender: FDA-Public Use
  Company Number: US-ABBOTT-11P-163-0845927-00

PATIENT
  Sex: Female

DRUGS (8)
  1. GLUCOSAMINE [Concomitant]
     Indication: VITAMIN SUPPLEMENTATION
  2. VITAMIN D [Concomitant]
     Indication: VITAMIN SUPPLEMENTATION
  3. HUMIRA [Suspect]
     Indication: CROHN'S DISEASE
     Dates: start: 20080401, end: 20110501
  4. ASACOL [Concomitant]
     Indication: CROHN'S DISEASE
  5. ACTONEL [Concomitant]
     Indication: BONE LOSS
     Dosage: WEEKLY
  6. POTASSIUM [Concomitant]
     Indication: MINERAL SUPPLEMENTATION
  7. CALCIUM [Concomitant]
     Indication: MINERAL SUPPLEMENTATION
  8. HUMIRA [Suspect]
     Dates: start: 20110501

REACTIONS (2)
  - OROPHARYNGEAL PAIN [None]
  - PHARYNGITIS BACTERIAL [None]
